FAERS Safety Report 5565004-4 (Version None)
Quarter: 2007Q4

REPORT INFORMATION
  Report Type: 
  Country: None (occurrence: None)
  Receive Date: 20071212
  Receipt Date: 20071203
  Transmission Date: 20080405
  Serious: Yes (Hospitalization)
  Sender: FDA-Public Use
  Company Number: E2020-01950-SPO-US

PATIENT
  Age: 83 Year
  Sex: Male

DRUGS (1)
  1. ARICEPT [Suspect]
     Indication: DEMENTIA
     Dosage: ORAL
     Route: 048

REACTIONS (3)
  - BLOOD SODIUM INCREASED [None]
  - COLLAPSE OF LUNG [None]
  - HEART RATE ABNORMAL [None]
